FAERS Safety Report 10924697 (Version 2)
Quarter: 2015Q2

REPORT INFORMATION
  Report Type: Spontaneous
  Country: US (occurrence: US)
  Receive Date: 20150318
  Receipt Date: 20150524
  Transmission Date: 20150821
  Serious: No
  Sender: FDA-Public Use
  Company Number: US-JNJFOC-20121101333

PATIENT
  Sex: Male

DRUGS (3)
  1. NIZORAL A-D [Suspect]
     Active Substance: KETOCONAZOLE
     Indication: PRURITUS
     Dosage: AT LEAST 2 TBSP, QUITE A BIT
     Route: 061
     Dates: start: 20111101, end: 20121029
  2. OTHER DERMATOLOGICALS [Concomitant]
     Dosage: IN BETWEEN USE
     Route: 065
  3. NIZORAL A-D [Suspect]
     Active Substance: KETOCONAZOLE
     Indication: DANDRUFF
     Dosage: AT LEAST 2 TBSP, QUITE A BIT
     Route: 061
     Dates: start: 20111101, end: 20121029

REACTIONS (3)
  - Inappropriate schedule of drug administration [Recovered/Resolved]
  - Pruritus [Unknown]
  - Drug ineffective [Unknown]

NARRATIVE: CASE EVENT DATE: 20111101
